FAERS Safety Report 9553987 (Version 2)
Quarter: 2013Q4

REPORT INFORMATION
  Report Type: Spontaneous
  Country: CA (occurrence: CA)
  Receive Date: 20130925
  Receipt Date: 20131111
  Transmission Date: 20140711
  Serious: Yes (Hospitalization, Other)
  Sender: FDA-Public Use
  Company Number: CA-GLAXOSMITHKLINE-A1041837A

PATIENT
  Age: 37 Year
  Sex: Female
  Weight: 64 kg

DRUGS (1)
  1. VOTRIENT [Suspect]
     Indication: SARCOMA
     Dosage: 800MG PER DAY
     Route: 065
     Dates: start: 20130531

REACTIONS (7)
  - Pulmonary haemorrhage [Recovered/Resolved]
  - Chest discomfort [Unknown]
  - Lung disorder [Recovered/Resolved]
  - Pneumothorax [Recovered/Resolved]
  - Haemothorax [Unknown]
  - Metastases to lung [Unknown]
  - Mediastinal mass [Not Recovered/Not Resolved]
